FAERS Safety Report 15506419 (Version 3)
Quarter: 2020Q1

REPORT INFORMATION
  Report Type: Report from Study
  Country: DE (occurrence: DE)
  Receive Date: 20181016
  Receipt Date: 20200226
  Transmission Date: 20200409
  Serious: Yes (Other)
  Sender: FDA-Public Use
  Company Number: PHHY2018DE125126

PATIENT
  Sex: Female
  Weight: 60 kg

DRUGS (12)
  1. COSENTYX [Suspect]
     Active Substance: SECUKINUMAB
     Indication: PSORIATIC ARTHROPATHY
     Dosage: 150 MG, ONCE/SINGLE (PRE-FILLED PEN)
     Route: 065
     Dates: start: 20180228, end: 20180228
  2. COSENTYX [Suspect]
     Active Substance: SECUKINUMAB
     Dosage: 150 MG, ONCE/SINGLE (PRE-FILLED PEN)
     Route: 065
     Dates: start: 20180602, end: 20180602
  3. COSENTYX [Suspect]
     Active Substance: SECUKINUMAB
     Dosage: 150 MG, ONCE/SINGLE (PRE-FILLED PEN)
     Route: 065
     Dates: start: 20180314, end: 20180314
  4. COSENTYX [Suspect]
     Active Substance: SECUKINUMAB
     Dosage: 150 MG, ONCE/SINGLE (PRE-FILLED PEN)
     Route: 065
     Dates: start: 20180808, end: 20180808
  5. COSENTYX [Suspect]
     Active Substance: SECUKINUMAB
     Dosage: 150 MG, ONCE/SINGLE (PRE-FILLED PEN)
     Route: 065
     Dates: start: 20180329, end: 20180329
  6. SIMVASTATIN. [Concomitant]
     Active Substance: SIMVASTATIN
     Indication: HYPERCHOLESTEROLAEMIA
     Dosage: 40 MG, QD (0-0-1)
     Route: 048
     Dates: start: 20130726
  7. COSENTYX [Suspect]
     Active Substance: SECUKINUMAB
     Dosage: 150 MG, ONCE/SINGLE (PRE-FILLED PEN)
     Route: 065
     Dates: start: 20180307, end: 20180307
  8. COSENTYX [Suspect]
     Active Substance: SECUKINUMAB
     Dosage: 150 MG, ONCE/SINGLE (PRE-FILLED PEN)
     Route: 065
     Dates: start: 20180321, end: 20180321
  9. COSENTYX [Suspect]
     Active Substance: SECUKINUMAB
     Dosage: 150 MG, ONCE/SINGLE (PRE-FILLED PEN)
     Route: 065
     Dates: start: 20180501, end: 20180501
  10. COSENTYX [Suspect]
     Active Substance: SECUKINUMAB
     Dosage: 150 MG, ONCE/SINGLE (PRE-FILLED PEN)
     Route: 065
     Dates: start: 20180706, end: 20180706
  11. COSENTYX [Suspect]
     Active Substance: SECUKINUMAB
     Dosage: 150 MG, ONCE/SINGLE (PRE-FILLED PEN)
     Route: 065
     Dates: start: 20180910, end: 20180910
  12. LISINOPRIL. [Concomitant]
     Active Substance: LISINOPRIL
     Indication: HYPERTENSION
     Dosage: 10 MG, QD (0-0-0.5)
     Route: 048
     Dates: start: 20130726

REACTIONS (1)
  - Bronchitis [Recovered/Resolved]

NARRATIVE: CASE EVENT DATE: 20180913
